FAERS Safety Report 8649272 (Version 4)
Quarter: 2012Q4

REPORT INFORMATION
  Report Type: 
  Country: US (occurrence: US)
  Receive Date: 20120705
  Receipt Date: 20120913
  Transmission Date: 20130627
  Serious: Yes (Other)
  Sender: FDA-Public Use
  Company Number: US-BAYER-2012-065912

PATIENT
  Age: 32 Year
  Sex: Female

DRUGS (1)
  1. MIRENA [Suspect]
     Indication: CONTRACEPTION
     Dosage: 20 ?g/d, CONT
     Route: 015
     Dates: start: 20100924, end: 20120504

REACTIONS (14)
  - Discomfort [Recovered/Resolved]
  - Genital haemorrhage [Recovered/Resolved]
  - Device deployment issue [None]
  - Ovarian cyst [Recovered/Resolved]
  - Pelvic pain [Recovered/Resolved]
  - Abdominal pain [Recovered/Resolved]
  - Abdominal pain [Recovered/Resolved]
  - Genital infection fungal [Recovered/Resolved]
  - Device breakage [None]
  - Complication of device removal [None]
  - Headache [Recovered/Resolved]
  - Dyspareunia [Recovered/Resolved]
  - Coital bleeding [Recovered/Resolved]
  - Feeling abnormal [Recovered/Resolved]
